FAERS Safety Report 19035627 (Version 1)
Quarter: 2021Q1

REPORT INFORMATION
  Report Type: Spontaneous
  Country: US (occurrence: US)
  Receive Date: 20210320
  Receipt Date: 20210320
  Transmission Date: 20210420
  Serious: Yes (Other)
  Sender: FDA-Public Use
  Company Number: US-SA-2021SA092577

PATIENT
  Age: 68 Year
  Sex: Male

DRUGS (1)
  1. ZANTAC [Suspect]
     Active Substance: RANITIDINE HYDROCHLORIDE
     Indication: DYSPEPSIA
     Dosage: UNK
     Dates: start: 200701, end: 201910

REACTIONS (4)
  - Colorectal cancer stage IV [Unknown]
  - Lung neoplasm malignant [Unknown]
  - Prostate cancer stage IV [Unknown]
  - Bladder cancer stage IV [Unknown]

NARRATIVE: CASE EVENT DATE: 20150506
